FAERS Safety Report 12949203 (Version 1)
Quarter: 2016Q4

REPORT INFORMATION
  Report Type: Spontaneous
  Country: US (occurrence: US)
  Receive Date: 20161116
  Receipt Date: 20161116
  Transmission Date: 20170207
  Serious: No
  Sender: FDA-Public Use
  Company Number: US-TOLMAR, INC.-2015US007123

PATIENT
  Sex: Male

DRUGS (1)
  1. ELIGARD [Suspect]
     Active Substance: LEUPROLIDE ACETATE
     Indication: COMPULSIVE SEXUAL BEHAVIOUR
     Dosage: 22.5 MG, Q3MONTHS
     Route: 058

REACTIONS (2)
  - Off label use [Unknown]
  - Incorrect route of drug administration [Unknown]
